FAERS Safety Report 8305095-0 (Version None)
Quarter: 2012Q1

REPORT INFORMATION
  Report Type: 
  Country: None (occurrence: None)
  Receive Date: 20120326
  Receipt Date: 20110509
  Transmission Date: 20120608
  Serious: Yes (Other)
  Sender: FDA-Public Use
  Company Number: PHHY2011US28586

PATIENT
  Age: 57 Year
  Sex: Female
  Weight: 91.2 kg

DRUGS (3)
  1. ALLIGOA (ALLIUM SATIVUM, ALLIUM SATIVUM EXTRACT, CRATAEGUS EXTRACT, CR [Concomitant]
  2. TASIGNA [Suspect]
     Indication: CHRONIC MYELOID LEUKAEMIA
     Dosage: 400 MG, BID, ORAL
     Route: 048
     Dates: start: 20110401, end: 20110406
  3. ESTRIOL (ESTRIOL) [Concomitant]

REACTIONS (6)
  - VOMITING [None]
  - LIPASE INCREASED [None]
  - ABDOMINAL PAIN [None]
  - BACK PAIN [None]
  - PANCREATITIS ACUTE [None]
  - AMYLASE INCREASED [None]
